FAERS Safety Report 20063310 (Version 1)
Quarter: 2021Q4

REPORT INFORMATION
  Report Type: Spontaneous
  Country: BR (occurrence: BR)
  Receive Date: 20211112
  Receipt Date: 20211112
  Transmission Date: 20220303
  Serious: Yes (Other)
  Sender: FDA-Public Use
  Company Number: BR-TAKEDA-2021TUS026158

PATIENT

DRUGS (1)
  1. LISDEXAMFETAMINE DIMESYLATE [Suspect]
     Active Substance: LISDEXAMFETAMINE DIMESYLATE
     Indication: Product used for unknown indication
     Dosage: UNK
     Route: 065

REACTIONS (15)
  - Asthenia [Unknown]
  - Emotional distress [Unknown]
  - Impulsive behaviour [Unknown]
  - Boredom [Unknown]
  - Food aversion [Unknown]
  - Malnutrition [Unknown]
  - Eating disorder [Unknown]
  - Tremor [Unknown]
  - Logorrhoea [Unknown]
  - Depressed mood [Unknown]
  - Headache [Unknown]
  - Decreased appetite [Unknown]
  - Restlessness [Unknown]
  - Nausea [Unknown]
  - Inappropriate schedule of product administration [Unknown]
